FAERS Safety Report 20628187 (Version 6)
Quarter: 2022Q4

REPORT INFORMATION
  Report Type: Report from Study
  Country: US (occurrence: None)
  Receive Date: 20220323
  Receipt Date: 20221124
  Transmission Date: 20230112
  Serious: Yes (Other)
  Sender: FDA-Public Use
  Company Number: US-ROCHE-3040392

PATIENT
  Age: 73 Year
  Sex: Female
  Weight: 71.4 kg

DRUGS (19)
  1. RANIBIZUMAB [Suspect]
     Active Substance: RANIBIZUMAB
     Indication: Neovascular age-related macular degeneration
     Dosage: START DATE OF MOST RECENT DOSE PRIOR TO THE ONSET OF AE15/DEC/2021?DOSE: 100MG/ML?EVERY 24 WEEKS?ON
     Route: 050
     Dates: start: 20210121
  2. RANIBIZUMAB [Suspect]
     Active Substance: RANIBIZUMAB
  3. RANIBIZUMAB [Suspect]
     Active Substance: RANIBIZUMAB
  4. RANIBIZUMAB [Suspect]
     Active Substance: RANIBIZUMAB
  5. RANIBIZUMAB [Suspect]
     Active Substance: RANIBIZUMAB
  6. RANIBIZUMAB [Concomitant]
     Active Substance: RANIBIZUMAB
     Indication: Neovascular age-related macular degeneration
     Dosage: START DATE OF MOST RECENT DOSE OF STUDY DRUG PRIOR TO AE 15/DEC/2021?DOSE OF STUDY DRUG FIRST ADMINI
     Route: 050
     Dates: start: 20210707
  7. CITALOPRAM [Concomitant]
     Active Substance: CITALOPRAM HYDROBROMIDE
     Indication: Depression
     Route: 048
     Dates: start: 1999
  8. ESTRADIOL [Concomitant]
     Active Substance: ESTRADIOL
     Indication: Postmenopause
     Route: 048
     Dates: start: 1977
  9. MYRBETRIQ [Concomitant]
     Active Substance: MIRABEGRON
     Indication: Hypertonic bladder
     Route: 048
     Dates: start: 2016
  10. OMEPRAZOLE [Concomitant]
     Active Substance: OMEPRAZOLE
     Indication: Gastrooesophageal reflux disease
     Route: 048
     Dates: start: 2004
  11. MELATONIN [Concomitant]
     Active Substance: MELATONIN
     Route: 048
     Dates: start: 2014
  12. HYDROCODONE [Concomitant]
     Active Substance: HYDROCODONE
     Indication: Osteoarthritis
     Route: 048
     Dates: start: 2018
  13. CANNABIDIOL [Concomitant]
     Active Substance: CANNABIDIOL
     Route: 061
     Dates: start: 2018
  14. CELEBREX [Concomitant]
     Active Substance: CELECOXIB
     Indication: Osteoarthritis
     Route: 048
     Dates: start: 20190321
  15. GABAPENTIN [Concomitant]
     Active Substance: GABAPENTIN
     Indication: Restless legs syndrome
     Route: 048
     Dates: start: 20190415
  16. VANCOMYCIN [Concomitant]
     Active Substance: VANCOMYCIN
     Route: 048
     Dates: start: 20210307
  17. OFLOXACIN [Concomitant]
     Active Substance: OFLOXACIN
     Route: 047
     Dates: start: 20220121, end: 20220203
  18. PREDNISOLONE ACETATE [Concomitant]
     Active Substance: PREDNISOLONE ACETATE
     Route: 047
     Dates: start: 20220121, end: 20220203
  19. ERYTHROMYCIN [Concomitant]
     Active Substance: ERYTHROMYCIN
     Route: 047
     Dates: start: 20220121, end: 20220206

REACTIONS (2)
  - Device dislocation [Unknown]
  - No adverse event [Unknown]

NARRATIVE: CASE EVENT DATE: 20211228
